FAERS Safety Report 5289085-0 (Version None)
Quarter: 2007Q1

REPORT INFORMATION
  Report Type: 
  Country: None (occurrence: None)
  Receive Date: 20070122
  Receipt Date: 20060116
  Transmission Date: 20070707
  Serious: Yes (Other)
  Sender: FDA-Public Use
  Company Number: PHEH2005US13294

PATIENT
  Age: 50 Year
  Sex: Female
  Weight: 84.4 kg

DRUGS (2)
  1. SANDOSTATIN LAR [Suspect]
     Indication: GASTROINTESTINAL HAEMORRHAGE
     Dosage: 20 MG, QMO, INTRAMUSCULAR
     Route: 030
     Dates: start: 20050701
  2. ESTRATEST [Concomitant]

REACTIONS (9)
  - AMNESIA [None]
  - CONFUSIONAL STATE [None]
  - DEPRESSION [None]
  - MEAN PLATELET VOLUME DECREASED [None]
  - MUSCLE SPASMS [None]
  - NERVOUSNESS [None]
  - TREMOR [None]
  - VISUAL ACUITY REDUCED [None]
  - WEIGHT INCREASED [None]
